FAERS Safety Report 7808828-2 (Version None)
Quarter: 2011Q4

REPORT INFORMATION
  Report Type: 
  Country: None (occurrence: None)
  Receive Date: 20111012
  Receipt Date: 20111004
  Transmission Date: 20120403
  Serious: Yes (Hospitalization)
  Sender: FDA-Public Use
  Company Number: PHHO2011AU15636

PATIENT
  Sex: Male

DRUGS (9)
  1. NORVASC [Concomitant]
     Dosage: 5 MG, QD
     Route: 048
     Dates: start: 20110428, end: 20110502
  2. OXYCODONE HCL [Concomitant]
     Dosage: 5 MG, PRN
     Route: 048
     Dates: start: 20110325
  3. ACETAMINOPHEN [Concomitant]
     Dosage: 500 MG, PRN
     Route: 048
     Dates: start: 20110301
  4. COLOXYL [Concomitant]
     Dosage: 50 MG, PRN
     Route: 048
     Dates: start: 20110701
  5. AFINITOR [Suspect]
     Indication: RENAL CELL CARCINOMA
     Dosage: 10 MG, UNK
  6. OXYCONTIN [Concomitant]
     Dosage: 20 MG, BID
     Route: 048
     Dates: start: 20110721
  7. BISACODYL [Concomitant]
     Dosage: 10 MG, QD
     Route: 048
     Dates: start: 20110325
  8. NORVASC [Concomitant]
     Dosage: 10 MG, QD
     Route: 048
     Dates: start: 20110503
  9. SUNITINIB MALATE [Suspect]
     Indication: RENAL CELL CARCINOMA
     Dosage: 50 MG, UNK

REACTIONS (1)
  - LARGE INTESTINAL HAEMORRHAGE [None]
